FAERS Safety Report 7607032-0 (Version None)
Quarter: 2011Q3

REPORT INFORMATION
  Report Type: 
  Country: None (occurrence: None)
  Receive Date: 20110713
  Receipt Date: 20110708
  Transmission Date: 20111222
  Serious: Yes (Hospitalization, Other)
  Sender: FDA-Public Use
  Company Number: US-AMGEN-QUU424714

PATIENT
  Age: 83 Year
  Sex: Female
  Weight: 93.5 kg

DRUGS (5)
  1. NPLATE [Suspect]
     Dates: start: 20100217
  2. PREDNISONE [Concomitant]
  3. NPLATE [Suspect]
     Dosage: UNK UNK, QWK
     Dates: start: 20100217
  4. CORTICOSTEROID NOS [Concomitant]
     Dosage: UNK UNK, UNK
     Dates: start: 20100129
  5. NPLATE [Suspect]
     Indication: IDIOPATHIC THROMBOCYTOPENIC PURPURA
     Dosage: UNK UNK, QWK
     Dates: start: 20100217

REACTIONS (3)
  - DEEP VEIN THROMBOSIS [None]
  - RENAL MASS [None]
  - PULMONARY EMBOLISM [None]
